FAERS Safety Report 11652430 (Version 1)
Quarter: 2015Q4

REPORT INFORMATION
  Report Type: Spontaneous
  Country: BR (occurrence: BR)
  Receive Date: 20151022
  Receipt Date: 20151022
  Transmission Date: 20160304
  Serious: Yes (Hospitalization, Other)
  Sender: FDA-Public Use
  Company Number: BR-ASTRAZENECA-2015SF01639

PATIENT
  Age: 58 Year
  Sex: Male
  Weight: 108 kg

DRUGS (11)
  1. CRESTOR [Suspect]
     Active Substance: ROSUVASTATIN CALCIUM
     Dosage: 20MG
     Route: 048
  2. BRILINTA [Suspect]
     Active Substance: TICAGRELOR
     Dosage: TWO TIMES A DAY
     Route: 048
  3. GLIFAGE [Suspect]
     Active Substance: METFORMIN HYDROCHLORIDE
     Route: 065
  4. INSULIN [Suspect]
     Active Substance: INSULIN NOS
     Route: 065
     Dates: start: 201506
  5. BENICAR ANLO [Suspect]
     Active Substance: AMLODIPINE BESYLATE\OLMESARTAN MEDOXOMIL
     Dosage: 20/5MG
     Route: 065
  6. FORXIGA [Suspect]
     Active Substance: DAPAGLIFLOZIN
     Route: 048
     Dates: start: 201506
  7. ECASIL [Suspect]
     Active Substance: ASPIRIN
     Dosage: 100MG
     Route: 065
  8. GLIFAGE [Suspect]
     Active Substance: METFORMIN HYDROCHLORIDE
     Dosage: 500 MG TWO TIMES A DAY, GLIFAGE XR
     Route: 065
     Dates: start: 201506
  9. PANTOPRAZOLE [Suspect]
     Active Substance: PANTOPRAZOLE SODIUM
     Dosage: 40MG
     Route: 065
  10. GLIFAGE [Suspect]
     Active Substance: METFORMIN HYDROCHLORIDE
     Dosage: 500 MG THREE TIMES A DAY, GLIFAGE XR
     Route: 065
     Dates: start: 201305
  11. SELOZOK [Suspect]
     Active Substance: METOPROLOL SUCCINATE
     Dosage: 25MG
     Route: 048

REACTIONS (2)
  - Acute myocardial infarction [Unknown]
  - Coronary artery occlusion [Unknown]

NARRATIVE: CASE EVENT DATE: 201401
